FAERS Safety Report 15227870 (Version 2)
Quarter: 2019Q4

REPORT INFORMATION
  Report Type: Spontaneous
  Country: US (occurrence: US)
  Receive Date: 20180801
  Receipt Date: 20191119
  Transmission Date: 20200122
  Serious: Yes (Death, Other)
  Sender: FDA-Public Use
  Company Number: US-GILEAD-2018-0344800

PATIENT
  Age: 64 Year
  Sex: Female
  Weight: 76.7 kg

DRUGS (7)
  1. FLUDARABINE [Suspect]
     Active Substance: FLUDARABINE PHOSPHATE
     Indication: BONE MARROW CONDITIONING REGIMEN
     Dosage: UNK
     Route: 065
     Dates: start: 20171221, end: 20171223
  2. KEPPRA [Concomitant]
     Active Substance: LEVETIRACETAM
     Indication: PROPHYLAXIS
     Dosage: UNK
     Dates: start: 20171226
  3. FLUCONAZOLE. [Concomitant]
     Active Substance: FLUCONAZOLE
     Dosage: 3 G DAILY
     Dates: start: 20180111
  4. CYCLOPHOSPHAMIDE. [Suspect]
     Active Substance: CYCLOPHOSPHAMIDE
     Indication: BONE MARROW CONDITIONING REGIMEN
     Dosage: UNK
     Route: 065
     Dates: start: 20171221, end: 20171223
  5. FLUCONAZOLE. [Concomitant]
     Active Substance: FLUCONAZOLE
     Indication: PROPHYLAXIS
     Dosage: UNK
     Dates: start: 20171226
  6. YESCARTA [Suspect]
     Active Substance: AXICABTAGENE CILOLEUCEL
     Indication: DIFFUSE LARGE B-CELL LYMPHOMA
     Dosage: UNK, ONCE
     Route: 042
     Dates: start: 20171226, end: 20171226
  7. ACYCLOVIR                          /00587301/ [Concomitant]
     Active Substance: ACYCLOVIR
     Indication: PROPHYLAXIS
     Dosage: UNK
     Dates: start: 20171226

REACTIONS (36)
  - Subarachnoid haemorrhage [Unknown]
  - Cholecystitis acute [Unknown]
  - Pyrexia [Unknown]
  - Malaise [Unknown]
  - Hypoalbuminaemia [Unknown]
  - Cardio-respiratory arrest [Fatal]
  - Ventricular failure [Unknown]
  - Pancytopenia [Unknown]
  - Neurotoxicity [Unknown]
  - Hypoxia [Unknown]
  - Pulmonary oedema [Unknown]
  - Stress cardiomyopathy [Unknown]
  - Haemophagocytic lymphohistiocytosis [Fatal]
  - Cytokine release syndrome [Unknown]
  - Clostridium difficile colitis [Unknown]
  - Liver disorder [Unknown]
  - Hyperbilirubinaemia [Unknown]
  - Bradycardia [Fatal]
  - Hypofibrinogenaemia [Unknown]
  - Fluid overload [Unknown]
  - Nausea [Unknown]
  - Pleural effusion [Unknown]
  - Transaminases increased [Unknown]
  - Febrile neutropenia [Unknown]
  - Ejection fraction decreased [Unknown]
  - Arrhythmia [Unknown]
  - Brain stem infarction [Unknown]
  - Disseminated intravascular coagulation [Unknown]
  - Encephalopathy [Unknown]
  - Hepatic steatosis [Unknown]
  - Tachycardia [Unknown]
  - Fatigue [Unknown]
  - Multi-organ disorder [Fatal]
  - Cardiac failure congestive [Unknown]
  - Physical deconditioning [Unknown]
  - Tachypnoea [Unknown]

NARRATIVE: CASE EVENT DATE: 20171228
